FAERS Safety Report 6206073-8 (Version None)
Quarter: 2009Q2

REPORT INFORMATION
  Report Type: 
  Country: None (occurrence: None)
  Receive Date: 20090528
  Receipt Date: 20090525
  Transmission Date: 20091009
  Serious: Yes (Hospitalization)
  Sender: FDA-Public Use
  Company Number: FR-BRISTOL-MYERS SQUIBB COMPANY-14607345

PATIENT
  Age: 82 Year
  Sex: Female
  Weight: 48 kg

DRUGS (1)
  1. BARACLUDE [Suspect]
     Dosage: TAKEN FOR ONE YEAR AND A HALF

REACTIONS (5)
  - ANOREXIA [None]
  - FATIGUE [None]
  - TACHYCARDIA [None]
  - VOMITING [None]
  - WEIGHT DECREASED [None]
